FAERS Safety Report 9531960 (Version 2)
Quarter: 2013Q4

REPORT INFORMATION
  Report Type: Spontaneous
  Country: US (occurrence: US)
  Receive Date: 20130918
  Receipt Date: 20131106
  Transmission Date: 20140711
  Serious: Yes (Other)
  Sender: FDA-Public Use
  Company Number: US-BAYER-2013-112539

PATIENT
  Age: 25 Year
  Sex: Female
  Weight: 56.69 kg

DRUGS (1)
  1. MIRENA [Suspect]
     Indication: CONTRACEPTION
     Dosage: 20 MCG/24HR, CONT
     Route: 015
     Dates: start: 200908, end: 20111029

REACTIONS (8)
  - Device dislocation [None]
  - Device issue [None]
  - Injury [None]
  - Emotional distress [None]
  - Procedural pain [None]
  - Anxiety [None]
  - Stress [None]
  - Pain [None]
